FAERS Safety Report 8899994 (Version 5)
Quarter: 2013Q1

REPORT INFORMATION
  Report Type: Report from Study
  Country: NZ (occurrence: NZ)
  Receive Date: 20121109
  Receipt Date: 20130125
  Transmission Date: 20140127
  Serious: Yes (Hospitalization, Other)
  Sender: FDA-Public Use
  Company Number: PHHY2012NZ102688

PATIENT
  Age: 16 Year
  Sex: Male
  Weight: 63.2 kg

DRUGS (6)
  1. CLOZARIL [Suspect]
     Indication: PSYCHOTIC DISORDER
     Dosage: 375 MG
     Route: 048
     Dates: start: 20110418, end: 20121113
  2. CLOZARIL [Suspect]
     Indication: SCHIZOPHRENIA
  3. OLANZAPINE [Concomitant]
     Indication: PSYCHOTIC DISORDER
     Dosage: 15 NG, UNK
     Route: 048
     Dates: start: 20120124
  4. OLANZAPINE [Concomitant]
     Indication: DELIRIUM
  5. FLUOXETINE [Concomitant]
     Indication: ANXIETY
     Dosage: 20 UNK, UNK
     Dates: start: 20120809
  6. FLUOXETINE [Concomitant]
     Indication: OBSESSIVE THOUGHTS

REACTIONS (12)
  - Myocarditis [Recovering/Resolving]
  - Dyspnoea [Recovering/Resolving]
  - Troponin increased [Recovering/Resolving]
  - Malaise [Recovering/Resolving]
  - Exercise tolerance decreased [Unknown]
  - Bundle branch block right [Recovering/Resolving]
  - Pericardial effusion [Unknown]
  - QRS axis abnormal [Recovering/Resolving]
  - Pericarditis [Unknown]
  - Tachycardia [Unknown]
  - Heart rate increased [Recovering/Resolving]
  - Decreased appetite [Unknown]
